FAERS Safety Report 14742641 (Version 1)
Quarter: 2018Q2

REPORT INFORMATION
  Report Type: Spontaneous
  Country: US (occurrence: US)
  Receive Date: 20180410
  Receipt Date: 20180410
  Transmission Date: 20180711
  Serious: Yes (Hospitalization, Other)
  Sender: FDA-Public Use
  Company Number: US-INDIVIOR LIMITED-INDV-110125-2018

PATIENT
  Age: 57 Year
  Sex: Female

DRUGS (1)
  1. SUBOXONE [Suspect]
     Active Substance: BUPRENORPHINE HYDROCHLORIDE\NALOXONE HYDROCHLORIDE
     Indication: DRUG DEPENDENCE
     Dosage: 8 MG (TWICE DAILY)
     Route: 060
     Dates: start: 20081003

REACTIONS (8)
  - Metastases to central nervous system [Unknown]
  - Respiratory syncytial virus infection [Unknown]
  - Product use issue [Not Recovered/Not Resolved]
  - Breast cancer metastatic [None]
  - Respiratory failure [Unknown]
  - Metastases to neck [Unknown]
  - Breast cancer recurrent [Unknown]
  - Metastases to spine [Unknown]

NARRATIVE: CASE EVENT DATE: 20081003
